FAERS Safety Report 15957214 (Version 2)
Quarter: 2020Q4

REPORT INFORMATION
  Report Type: Report from Study
  Country: US (occurrence: US)
  Receive Date: 20190213
  Receipt Date: 20201029
  Transmission Date: 20210113
  Serious: Yes (Other)
  Sender: FDA-Public Use
  Company Number: PHEH2019US005928

PATIENT
  Age: 67 Year
  Sex: Female

DRUGS (1)
  1. GLATOPA [Suspect]
     Active Substance: GLATIRAMER ACETATE
     Indication: PRODUCT USED FOR UNKNOWN INDICATION
     Dosage: 1 MG, QD
     Route: 058
     Dates: start: 20190122, end: 20190206

REACTIONS (4)
  - Feeling abnormal [Unknown]
  - Asthenia [Unknown]
  - Gait disturbance [Unknown]
  - Sluggishness [Unknown]

NARRATIVE: CASE EVENT DATE: 20190122
